FAERS Safety Report 4473712-1 (Version None)
Quarter: 2004Q4

REPORT INFORMATION
  Report Type: 
  Country: None (occurrence: None)
  Receive Date: 20040909
  Receipt Date: 20030729
  Transmission Date: 20050328
  Serious: No
  Sender: FDA-Public Use
  Company Number: APP200301745

PATIENT
  Age: 26 Year
  Sex: Female
  Weight: 84.37 kg

DRUGS (1)
  1. OXYTOCIN [Suspect]
     Indication: LABOUR INDUCTION
     Dosage: { 20 USP UNITS (ONCE), INTRAVENOUS
     Route: 042
     Dates: start: 20030728, end: 20030728

REACTIONS (1)
  - DRUG INEFFECTIVE [None]
